FAERS Safety Report 4567297-9 (Version None)
Quarter: 2005Q1

REPORT INFORMATION
  Report Type: 
  Country: None (occurrence: None)
  Receive Date: 20050127
  Receipt Date: 20050115
  Transmission Date: 20050727
  Serious: Yes (Life-Threatening, Hospitalization)
  Sender: FDA-Public Use
  Company Number: 2005015116

PATIENT
  Age: 70 Year
  Sex: Male

DRUGS (8)
  1. SPIRONOLACTONE [Suspect]
     Indication: HYPERTENSION
  2. FUROSEMIDE                           (FUROSEMIDE) [Suspect]
     Indication: HYPERTENSION
  3. METOLAZONE [Suspect]
     Indication: HYPERTENSION
  4. LOSARTAN (LOSARTAN) [Concomitant]
  5. CEFTRIAXONE [Concomitant]
  6. CEFUROXIME [Concomitant]
  7. GENTAMICIN [Concomitant]
  8. CEFTAZIDE       (CEFTAZIDIME) [Concomitant]

REACTIONS (10)
  - ANOREXIA [None]
  - ASTHENIA [None]
  - CONSTIPATION [None]
  - EFFUSION [None]
  - HYPERKALAEMIA [None]
  - HYPOKALAEMIA [None]
  - HYPONATRAEMIA [None]
  - PNEUMONIA [None]
  - PSEUDOMONAS INFECTION [None]
  - WEIGHT DECREASED [None]
